FAERS Safety Report 6891923-2 (Version None)
Quarter: 2010Q3

REPORT INFORMATION
  Report Type: 
  Country: None (occurrence: None)
  Receive Date: 20100731
  Receipt Date: 20071127
  Transmission Date: 20110219
  Serious: No
  Sender: FDA-Public Use
  Company Number: US-PFIZER INC-2007099432

PATIENT
  Sex: Female

DRUGS (4)
  1. AMLODIPINE [Suspect]
  2. CARVEDILOL [Suspect]
  3. NORVASC [Concomitant]
  4. COREG [Concomitant]

REACTIONS (6)
  - DIZZINESS [None]
  - HEADACHE [None]
  - HYPERSENSITIVITY [None]
  - LACRIMATION INCREASED [None]
  - PRURITUS [None]
  - URTICARIA [None]
